FAERS Safety Report 8862468 (Version 1)
Quarter: 2012Q4

REPORT INFORMATION
  Report Type: 
  Country: US (occurrence: US)
  Receive Date: 20121026
  Receipt Date: 20121026
  Transmission Date: 20130627
  Serious: No
  Sender: FDA-Public Use
  Company Number: US-ALLERGAN-1113381US

PATIENT
  Age: 76 Year
  Sex: Female

DRUGS (1)
  1. ALPHAGAN P [Suspect]
     Indication: GLAUCOMA
     Dosage: 2 Gtt, bid
     Dates: start: 20111004, end: 20111009

REACTIONS (7)
  - Glare [Recovered/Resolved]
  - Photophobia [Recovered/Resolved]
  - Headache [Unknown]
  - Eye irritation [Recovering/Resolving]
  - Eye pruritus [Unknown]
  - Foreign body sensation in eyes [Unknown]
  - Ocular hyperaemia [Recovering/Resolving]
